FAERS Safety Report 7559043-1 (Version None)
Quarter: 2011Q2

REPORT INFORMATION
  Report Type: 
  Country: None (occurrence: None)
  Receive Date: 20110621
  Receipt Date: 20110616
  Transmission Date: 20111010
  Serious: No
  Sender: FDA-Public Use
  Company Number: US-PFIZER INC-2011132825

PATIENT
  Sex: Female
  Weight: 94.785 kg

DRUGS (15)
  1. AMLODIPINE [Concomitant]
     Indication: HYPERTENSION
     Dosage: 5 MG, 2X/DAY
  2. TOVIAZ [Suspect]
     Indication: POLLAKIURIA
     Dosage: 4 MG, 1X/DAY
     Dates: start: 20110501
  3. CLONAZEPAM [Concomitant]
     Indication: ANXIETY
     Dosage: UNK
  4. CLONIDINE [Concomitant]
     Indication: HYPERTENSION
     Dosage: 0.1 MG, WEEKLY
  5. AMBIEN [Concomitant]
     Indication: ANXIETY
     Dosage: UNK
  6. FLONASE [Concomitant]
     Dosage: UNK
     Route: 045
  7. CLONAZEPAM [Concomitant]
     Indication: SLEEP DISORDER
  8. LISINOPRIL [Concomitant]
     Indication: HYPERTENSION
     Dosage: 20 MG, 2X/DAY
  9. NEURONTIN [Concomitant]
     Indication: MYALGIA
     Dosage: 100 MG, 3X/DAY
     Dates: start: 20110101
  10. CYMBALTA [Concomitant]
     Indication: BIPOLAR DISORDER
     Dosage: 60 MG, 1X/DAY
     Dates: start: 20110101
  11. FLEXERIL [Concomitant]
     Indication: BACK PAIN
     Dosage: UNK
  12. NEXIUM [Concomitant]
     Indication: GASTROOESOPHAGEAL REFLUX DISEASE
     Dosage: 40 MG, 1X/DAY
  13. LAMICTAL [Concomitant]
     Indication: BIPOLAR DISORDER
     Dosage: 25 MG, 3X/DAY
     Dates: start: 20110101
  14. AMBIEN [Concomitant]
     Indication: SLEEP DISORDER
  15. WELLBUTRIN [Concomitant]
     Indication: BIPOLAR DISORDER
     Dosage: 75 MG, 1X/DAY
     Dates: start: 20110101

REACTIONS (1)
  - OEDEMA PERIPHERAL [None]
